FAERS Safety Report 6136472-4 (Version None)
Quarter: 2009Q1

REPORT INFORMATION
  Report Type: 
  Country: None (occurrence: None)
  Receive Date: 20090325
  Receipt Date: 20090317
  Transmission Date: 20090719
  Serious: No
  Sender: FDA-Public Use
  Company Number: AE-2008-060

PATIENT
  Age: 69 Year
  Sex: Female

DRUGS (5)
  1. METFORMIN HCL [Suspect]
     Indication: DIABETES MELLITUS
     Dosage: 1 G, ORAL
     Route: 048
     Dates: start: 20090110, end: 20090112
  2. GABAPENTIN [Suspect]
     Indication: NEURALGIA
     Dosage: 1.2 G, ORAL
     Route: 048
  3. CLEXANE [Concomitant]
  4. CLONIDINE [Concomitant]
  5. DECORTIN [Concomitant]

REACTIONS (1)
  - AGRANULOCYTOSIS [None]
